FAERS Safety Report 5950320-4 (Version None)
Quarter: 2008Q4

REPORT INFORMATION
  Report Type: 
  Country: None (occurrence: None)
  Receive Date: 20081112
  Receipt Date: 20081103
  Transmission Date: 20090506
  Serious: Yes (Other)
  Sender: FDA-Public Use
  Company Number: PHHY2008GB24076

PATIENT
  Sex: Male

DRUGS (3)
  1. CLOZARIL [Suspect]
     Indication: SCHIZOPHRENIA
     Dosage: 350 MG NOCTE
     Route: 048
     Dates: start: 19981214
  2. MOVICOL [Concomitant]
     Indication: LAXATIVE SUPPORTIVE CARE
     Route: 048
  3. TOPICAL TREATMENT [Concomitant]
     Indication: DERMATITIS

REACTIONS (6)
  - DECREASED APPETITE [None]
  - EOSINOPHIL COUNT INCREASED [None]
  - EOSINOPHILIA [None]
  - LYMPHOCYTE STIMULATION TEST POSITIVE [None]
  - RED BLOOD CELL MORPHOLOGY ABNORMAL [None]
  - WEIGHT DECREASED [None]
